FAERS Safety Report 8030092-2 (Version None)
Quarter: 2012Q1

REPORT INFORMATION
  Report Type: 
  Country: None (occurrence: None)
  Receive Date: 20120109
  Receipt Date: 20111227
  Transmission Date: 20120608
  Serious: Yes (Death)
  Sender: FDA-Public Use
  Company Number: US-JNJFOC-20111212536

PATIENT
  Age: 56 Year
  Sex: Female

DRUGS (5)
  1. ACETYLSALICYLIC ACID W/CARISOPRODOL [Suspect]
     Indication: PRODUCT USED FOR UNKNOWN INDICATION
     Route: 048
  2. PARACETAMOL/DIPHENHYDRAMINE HCL [Suspect]
     Indication: ILL-DEFINED DISORDER
     Route: 048
  3. ACETAMINOPHEN/HYDROCODONE BITARTRATE [Suspect]
     Indication: PRODUCT USED FOR UNKNOWN INDICATION
     Route: 048
  4. PARACETAMOL/DIPHENHYDRAMINE HCL [Suspect]
     Route: 048
  5. PARACETAMOL W/PROPOXYPHENE [Suspect]
     Indication: PRODUCT USED FOR UNKNOWN INDICATION

REACTIONS (3)
  - CARDIO-RESPIRATORY ARREST [None]
  - TOXICITY TO VARIOUS AGENTS [None]
  - COMPLETED SUICIDE [None]
